FAERS Safety Report 4598312-4 (Version None)
Quarter: 2005Q1

REPORT INFORMATION
  Report Type: 
  Country: None (occurrence: None)
  Receive Date: 20050302
  Receipt Date: 20050218
  Transmission Date: 20050727
  Serious: Yes (Other)
  Sender: FDA-Public Use
  Company Number: 200510738BCC

PATIENT
  Age: 36 Year
  Sex: Male

DRUGS (4)
  1. LEMON LIME ALKA-SELTZER [Suspect]
     Indication: DYSPEPSIA
     Dosage: 650/3400 MG, ONCE, ORAL
     Route: 048
     Dates: start: 20050218
  2. XANAX [Concomitant]
  3. PROZAC [Concomitant]
  4. DIOVAN [Concomitant]

REACTIONS (3)
  - ANXIETY [None]
  - BLOOD PRESSURE INCREASED [None]
  - CONDITION AGGRAVATED [None]
